FAERS Safety Report 24028769 (Version 1)
Quarter: 2024Q2

REPORT INFORMATION
  Report Type: Spontaneous
  Country: US (occurrence: US)
  Receive Date: 20240628
  Receipt Date: 20240628
  Transmission Date: 20240716
  Serious: Yes (Other)
  Sender: FDA-Public Use
  Company Number: US-MLMSERVICE-20240611-PI094920-00306-1

PATIENT
  Age: 50 Year
  Sex: Male
  Weight: 75 kg

DRUGS (3)
  1. TACROLIMUS [Suspect]
     Active Substance: TACROLIMUS
     Indication: Product used for unknown indication
  2. GLECAPREVIR, PIBRENTASVIR [Concomitant]
     Indication: Mesangioproliferative glomerulonephritis
     Dosage: 90-DAY COURSE
  3. GLECAPREVIR, PIBRENTASVIR [Concomitant]
     Indication: Hepatitis C
     Dosage: 90-DAY COURSE

REACTIONS (2)
  - Renal tubular necrosis [Unknown]
  - Thrombotic microangiopathy [Unknown]
